FAERS Safety Report 12355614 (Version 1)
Quarter: 2016Q2

REPORT INFORMATION
  Report Type: Spontaneous
  Country: US (occurrence: None)
  Receive Date: 20160510
  Receipt Date: 20160510
  Transmission Date: 20160815
  Serious: Yes (Other)
  Sender: FDA-Public Use
  Company Number: None

PATIENT
  Age: 31 Year
  Sex: Female
  Weight: 102.97 kg

DRUGS (1)
  1. THRIVE [Suspect]
     Active Substance: NICOTINE
     Indication: WEIGHT CONTROL
     Dosage: APPLIED AS MEDICATED PATCH TO SKIN
     Dates: start: 20160504, end: 20160505

REACTIONS (2)
  - Nausea [None]
  - Migraine [None]

NARRATIVE: CASE EVENT DATE: 20160505
